FAERS Safety Report 8847309 (Version 1)
Quarter: 2012Q4

REPORT INFORMATION
  Report Type: 
  Country: US (occurrence: US)
  Receive Date: 20121018
  Receipt Date: 20121018
  Transmission Date: 20130627
  Serious: No
  Sender: FDA-Public Use
  Company Number: US-PFIZER INC-2012259179

PATIENT
  Sex: Female

DRUGS (1)
  1. NEURONTIN [Suspect]
     Dosage: UNK
     Dates: start: 20120709, end: 20121005

REACTIONS (1)
  - Psychomotor hyperactivity [Unknown]
